FAERS Safety Report 14423819 (Version 1)
Quarter: 2018Q1

REPORT INFORMATION
  Report Type: Spontaneous
  Country: US (occurrence: US)
  Receive Date: 20180122
  Receipt Date: 20180122
  Transmission Date: 20180509
  Serious: Yes (Disabling)
  Sender: FDA-Public Use
  Company Number: None

PATIENT
  Age: 35 Year
  Sex: Male
  Weight: 106.59 kg

DRUGS (1)
  1. CIPROFLOXACIN. [Suspect]
     Active Substance: CIPROFLOXACIN
     Indication: PROSTATITIS
     Dates: start: 20140114, end: 20140128

REACTIONS (20)
  - Muscle contractions involuntary [None]
  - Arthralgia [None]
  - Anxiety [None]
  - Vertigo [None]
  - Dizziness [None]
  - Mitochondrial myopathy [None]
  - Neuropathy peripheral [None]
  - Vision blurred [None]
  - Fatigue [None]
  - Depression [None]
  - Tremor [None]
  - Balance disorder [None]
  - Headache [None]
  - Confusional state [None]
  - Asthenia [None]
  - Myoclonus [None]
  - Amnesia [None]
  - Coordination abnormal [None]
  - Myalgia [None]
  - Exercise tolerance decreased [None]

NARRATIVE: CASE EVENT DATE: 20140127
